FAERS Safety Report 6157835-7 (Version None)
Quarter: 2009Q2

REPORT INFORMATION
  Report Type: 
  Country: None (occurrence: None)
  Receive Date: 20090414
  Receipt Date: 20090330
  Transmission Date: 20091009
  Serious: Yes (Hospitalization)
  Sender: FDA-Public Use
  Company Number: 2009S1005410

PATIENT
  Age: 11 Year
  Sex: Male
  Weight: 39 kg

DRUGS (4)
  1. METHOTREXATE [Suspect]
     Indication: BURKITT'S LYMPHOMA
     Dosage: 15 MG; EVERY OTHER DAY; INTRATHECAL
     Route: 037
     Dates: start: 20090215, end: 20090219
  2. METHOTREXATE [Suspect]
     Indication: BURKITT'S LYMPHOMA
     Dosage: 10 GM; AS NEEDED; INTRAVENOUS
     Route: 042
     Dates: start: 20090214, end: 20090214
  3. CYTARABINE [Suspect]
     Indication: BURKITT'S LYMPHOMA
     Dosage: 30 MG; EVERY OTHER DAY; INTRATHECAL
     Route: 037
     Dates: start: 20090215, end: 20090219
  4. HYDROCORTISONE [Concomitant]

REACTIONS (7)
  - DRUG LEVEL INCREASED [None]
  - ERYTHEMA [None]
  - MOUTH ULCERATION [None]
  - MUCOSAL INFLAMMATION [None]
  - PURPURA [None]
  - SKIN LESION [None]
  - WRONG TECHNIQUE IN DRUG USAGE PROCESS [None]
